FAERS Safety Report 24226484 (Version 1)
Quarter: 2024Q3

REPORT INFORMATION
  Report Type: Spontaneous
  Country: ES (occurrence: None)
  Receive Date: 20240820
  Receipt Date: 20240820
  Transmission Date: 20241016
  Serious: Yes (Life-Threatening, Other)
  Sender: NORMON
  Company Number: None

PATIENT
  Age: 61 Year
  Sex: Male
  Weight: 69.8 kg

DRUGS (8)
  1. PAZITAL 37,5 mg/ 325 mg COMPRIMIDOS EFERVESCENTES [Concomitant]
  2. TERRACORTRIL POMADA ESTERIL OTICO-OFTALMICA , 1 tubo de 3,5 g [Concomitant]
  3. ACFOL 5 mg COMPRIMIDOS , 28 comprimidos [Concomitant]
  4. Ketoconazol 20 mg/g gel [Concomitant]
  5. DUROGESIC MATRIX 12 microgramos/H PARCHES TRANSDERMICOS , 5 parches [Concomitant]
  6. HIDROFEROL 0,266 MG CAPSULAS BLANDAS [Concomitant]
  7. VANCOMYCIN [Suspect]
     Active Substance: VANCOMYCIN
     Indication: Pyrexia
     Dates: start: 20221205, end: 20221209
  8. NEURONTIN 300 mg CAPSULAS DURAS , 90 c?psulas [Concomitant]

REACTIONS (4)
  - Drug hypersensitivity [Recovering/Resolving]
  - Liver function test abnormal [Recovering/Resolving]
  - Pyrexia [Recovering/Resolving]
  - Eosinophilia [Recovering/Resolving]

NARRATIVE: CASE EVENT DATE: 20221207
